FAERS Safety Report 9050775 (Version 2)
Quarter: 2013Q1

REPORT INFORMATION
  Report Type: Spontaneous
  Country: US (occurrence: US)
  Receive Date: 20130205
  Receipt Date: 20130227
  Transmission Date: 20140127
  Serious: Yes (Hospitalization)
  Sender: FDA-Public Use
  Company Number: US-BIOGENIDEC-2013BI009435

PATIENT
  Age: 52 Year
  Sex: Male

DRUGS (3)
  1. AVONEX [Suspect]
     Indication: MULTIPLE SCLEROSIS
     Route: 030
     Dates: start: 19960820, end: 2003
  2. AVONEX [Suspect]
     Indication: MULTIPLE SCLEROSIS
     Route: 030
     Dates: start: 2003, end: 20121218
  3. COUMADIN THERAPY [Concomitant]
     Indication: THROMBOSIS PROPHYLAXIS
     Dates: start: 201301

REACTIONS (3)
  - Cardiac valve disease [Recovered/Resolved]
  - Heart valve calcification [Recovered/Resolved]
  - Heart rate decreased [Recovered/Resolved]
